FAERS Safety Report 16800799 (Version 1)
Quarter: 2019Q3

REPORT INFORMATION
  Report Type: Spontaneous
  Country: US (occurrence: US)
  Receive Date: 20190912
  Receipt Date: 20190912
  Transmission Date: 20191005
  Serious: No
  Sender: FDA-Public Use
  Company Number: US-ASTELLAS-2019US002900

PATIENT
  Age: 49 Year
  Sex: Female

DRUGS (1)
  1. XTANDI [Suspect]
     Active Substance: ENZALUTAMIDE
     Indication: BREAST CANCER
     Dosage: 160 MG,(4 CAPSULES DAILY)  ONCE DAILY
     Route: 048
     Dates: start: 201812

REACTIONS (5)
  - Back pain [Unknown]
  - Headache [Unknown]
  - Product use in unapproved indication [Unknown]
  - Neuropathy peripheral [Unknown]
  - Product use issue [Unknown]

NARRATIVE: CASE EVENT DATE: 201812
